FAERS Safety Report 23339093 (Version 1)
Quarter: 2023Q4

REPORT INFORMATION
  Report Type: Report from Study
  Country: TH (occurrence: TH)
  Receive Date: 20231226
  Receipt Date: 20231226
  Transmission Date: 20240109
  Serious: Yes (Other)
  Sender: FDA-Public Use
  Company Number: TH-JNJFOC-20231247785

PATIENT
  Age: 65 Year
  Sex: Female

DRUGS (2)
  1. BORTEZOMIB [Suspect]
     Active Substance: BORTEZOMIB
     Indication: Plasma cell myeloma
     Dosage: 2 MILLIGRAM, 2/WEEK
     Route: 058
     Dates: start: 20231006, end: 20231106
  2. DARZALEX [Suspect]
     Active Substance: DARATUMUMAB
     Indication: Plasma cell myeloma
     Dosage: 900 MILLIGRAM, 1/WEEK
     Route: 041
     Dates: start: 20231006, end: 20231110

REACTIONS (1)
  - Plasma cell myeloma [Unknown]
